FAERS Safety Report 8188819-5 (Version None)
Quarter: 2012Q1

REPORT INFORMATION
  Report Type: 
  Country: None (occurrence: None)
  Receive Date: 20120306
  Receipt Date: 20120224
  Transmission Date: 20120608
  Serious: Yes (Death, Congenital Anomaly)
  Sender: FDA-Public Use
  Company Number: US-GILEAD-2012-0051519

PATIENT

DRUGS (7)
  1. PREZISTA [Concomitant]
     Dosage: UNK
     Dates: start: 20111111, end: 20120110
  2. EDURANT [Concomitant]
     Indication: HIV INFECTION
     Dosage: UNK
     Route: 064
     Dates: start: 20111111, end: 20120110
  3. PREZISTA [Concomitant]
     Indication: HIV INFECTION
     Dosage: UNK
     Route: 064
     Dates: end: 20111111
  4. EMTRICITABINE AND TENOFOVIR DISOPROXIL FUMARATE [Suspect]
     Indication: HIV INFECTION
     Dosage: 1 DF, QD
     Route: 064
  5. EMTRICITABINE AND TENOFOVIR DISOPROXIL FUMARATE [Suspect]
     Dosage: UNK
  6. NORVIR [Concomitant]
     Indication: HIV INFECTION
     Dosage: UNK
     Route: 064
     Dates: end: 20111111
  7. NORVIR [Concomitant]
     Dosage: UNK
     Route: 064
     Dates: start: 20111111, end: 20120110

REACTIONS (3)
  - ABORTION SPONTANEOUS [None]
  - MATERNAL DRUGS AFFECTING FOETUS [None]
  - CYSTIC LYMPHANGIOMA [None]
